FAERS Safety Report 8403131-4 (Version None)
Quarter: 2012Q2

REPORT INFORMATION
  Report Type: 
  Country: None (occurrence: None)
  Receive Date: 20120601
  Receipt Date: 20120528
  Transmission Date: 20120825
  Serious: Yes (Death, Life-Threatening, Other)
  Sender: FDA-Public Use
  Company Number: US-JNJFOC-20120519717

PATIENT
  Sex: Female

DRUGS (6)
  1. VELCADE [Suspect]
     Indication: MULTIPLE MYELOMA
     Route: 065
     Dates: start: 20110421
  2. DEXAMETHASONE [Suspect]
     Indication: MULTIPLE MYELOMA
     Route: 065
  3. DOXORUBICIN HCL [Suspect]
     Indication: MULTIPLE MYELOMA
     Route: 042
     Dates: start: 20110421
  4. DOXORUBICIN HCL [Suspect]
     Indication: PLASMACYTOMA
     Route: 042
     Dates: start: 20110421
  5. VELCADE [Suspect]
     Indication: PLASMACYTOMA
     Route: 065
     Dates: start: 20110421
  6. DEXAMETHASONE [Suspect]
     Indication: PLASMACYTOMA
     Route: 065

REACTIONS (7)
  - SEPTIC SHOCK [None]
  - MUCOSAL INFLAMMATION [None]
  - MULTIPLE MYELOMA [None]
  - RENAL FAILURE CHRONIC [None]
  - PERIODONTAL INFECTION [None]
  - DYSPHAGIA [None]
  - NEOPLASM PROGRESSION [None]
